FAERS Safety Report 12378142 (Version 1)
Quarter: 2016Q2

REPORT INFORMATION
  Report Type: Spontaneous
  Country: US (occurrence: US)
  Receive Date: 20160517
  Receipt Date: 20160517
  Transmission Date: 20160815
  Serious: No
  Sender: FDA-Public Use
  Company Number: US-ASTRAZENECA-2016SE38157

PATIENT

DRUGS (2)
  1. AZITHROMYCIN ANHYDROUS. [Concomitant]
     Active Substance: AZITHROMYCIN ANHYDROUS
  2. PULMICORT FLEXHALER [Suspect]
     Active Substance: BUDESONIDE
     Indication: PRODUCT USED FOR UNKNOWN INDICATION
     Dosage: 180 UG X 2 PUFFS, TWO TIMES A DAY
     Route: 055

REACTIONS (10)
  - Asthma [Unknown]
  - Influenza [Unknown]
  - Dyspnoea [Unknown]
  - Cough [Unknown]
  - Bronchitis [Unknown]
  - Sinusitis [Unknown]
  - Laryngitis [Unknown]
  - Pneumonia [Unknown]
  - Chest discomfort [Unknown]
  - Intentional product misuse [Unknown]
